FAERS Safety Report 4909100-0 (Version None)
Quarter: 2006Q1

REPORT INFORMATION
  Report Type: 
  Country: None (occurrence: None)
  Receive Date: 20060208
  Receipt Date: 20060126
  Transmission Date: 20060701
  Serious: Yes (Hospitalization)
  Sender: FDA-Public Use
  Company Number: US-2005-023806

PATIENT
  Age: 62 Year
  Sex: Male

DRUGS (1)
  1. BETASERON (INTERFERON BETA - 1B) INJECTION, 250UG [Suspect]
     Indication: MULTIPLE SCLEROSIS
     Dosage: 8 MIU, EVERY 2D, SUBCUTANEOUS
     Route: 058
     Dates: start: 20040503

REACTIONS (7)
  - ADENOCARCINOMA [None]
  - COLONIC POLYP [None]
  - CONSTIPATION [None]
  - DELIRIUM [None]
  - POST PROCEDURAL COMPLICATION [None]
  - RECTAL ADENOMA [None]
  - RECTAL CANCER [None]
